FAERS Safety Report 24313509 (Version 1)
Quarter: 2024Q3

REPORT INFORMATION
  Report Type: Spontaneous
  Country: US (occurrence: US)
  Receive Date: 20240912
  Receipt Date: 20240912
  Transmission Date: 20241016
  Serious: Yes (Other)
  Sender: AGIOS PHARMACEUTICALS
  Company Number: US-AGIOS-2409US03873

PATIENT
  Age: 52 Year
  Sex: Male

DRUGS (4)
  1. PYRUKYND [Suspect]
     Active Substance: MITAPIVAT
     Indication: Pyruvate kinase deficiency anaemia
     Dosage: 5 MILLIGRAM, BID
     Route: 065
  2. PYRUKYND [Suspect]
     Active Substance: MITAPIVAT
     Dosage: 20 MILLIGRAM, BID
     Route: 065
     Dates: start: 202212
  3. PYRUKYND [Suspect]
     Active Substance: MITAPIVAT
     Dosage: 50 MILLIGRAM, BID
     Route: 065
     Dates: start: 202302, end: 202308
  4. PYRUKYND [Suspect]
     Active Substance: MITAPIVAT
     Dosage: UNK
     Route: 065
     Dates: start: 202401

REACTIONS (5)
  - Upper gastrointestinal haemorrhage [Unknown]
  - Chronic kidney disease [Unknown]
  - Fatigue [Unknown]
  - Anaemia [Unknown]
  - COVID-19 [Unknown]

NARRATIVE: CASE EVENT DATE: 20221201
